FAERS Safety Report 14816599 (Version 2)
Quarter: 2018Q2

REPORT INFORMATION
  Report Type: Spontaneous
  Country: DE (occurrence: DE)
  Receive Date: 20180426
  Receipt Date: 20180507
  Transmission Date: 20180711
  Serious: Yes (Hospitalization)
  Sender: FDA-Public Use
  Company Number: DE-PFIZER INC-2018170897

PATIENT
  Age: 87 Year
  Sex: Female

DRUGS (8)
  1. RAMIPRIL. [Suspect]
     Active Substance: RAMIPRIL
     Dosage: 5 MG, 2X/DAY
     Route: 048
  2. TOREM [Suspect]
     Active Substance: TORSEMIDE
     Dosage: 5 MG, 2X/DAY
     Route: 048
  3. MAGNESIUM VERLA [Concomitant]
     Active Substance: MAGNESIUM
     Dosage: UNK
  4. CONCOR [Suspect]
     Active Substance: BISOPROLOL FUMARATE
     Dosage: 1.25 MG, 2X/DAY
     Route: 048
  5. PLAVIX [Concomitant]
     Active Substance: CLOPIDOGREL BISULFATE
     Dosage: UNK
  6. PANTOZOL [Concomitant]
     Active Substance: PANTOPRAZOLE SODIUM
     Dosage: UNK
  7. KALINOR (POTASSIUM BICARBONATE\POTASSIUM CITRATE) [Concomitant]
     Active Substance: POTASSIUM BICARBONATE\POTASSIUM CITRATE
     Dosage: UNK
  8. ACETYLSALICYLSAEURE [Concomitant]
     Active Substance: ASPIRIN
     Dosage: UNK

REACTIONS (2)
  - Syncope [Recovering/Resolving]
  - Aphasia [Recovering/Resolving]
